FAERS Safety Report 17370139 (Version 1)
Quarter: 2020Q1

REPORT INFORMATION
  Report Type: Spontaneous
  Country: FR (occurrence: FR)
  Receive Date: 20200205
  Receipt Date: 20200205
  Transmission Date: 20200409
  Serious: Yes (Hospitalization)
  Sender: FDA-Public Use
  Company Number: FR-TEVA-2020-FR-1181229

PATIENT
  Age: 75 Year
  Sex: Female
  Weight: 75 kg

DRUGS (11)
  1. DOXYCYCLINE. [Suspect]
     Active Substance: DOXYCYCLINE
     Indication: OSTEITIS
     Dosage: 200 MG
     Route: 048
     Dates: start: 20191230, end: 20200114
  2. PANTOPRAZOLE SODIQUE SESQUIHYDRATE [Concomitant]
     Active Substance: PANTOPRAZOLE SODIUM
     Dosage: 20 MG
     Route: 048
  3. SERESTA 10 MG, COMPRIM? [Concomitant]
     Active Substance: OXAZEPAM
     Dosage: 10 MG
     Route: 048
  4. DALACINE [Concomitant]
     Active Substance: CLINDAMYCIN
     Indication: OSTEITIS
     Dosage: 1800 MG
     Route: 048
     Dates: start: 20191222
  5. GABAPENTINE [Concomitant]
     Active Substance: GABAPENTIN
     Dosage: 600 MG
     Route: 048
  6. BISOCE 5 MG, COMPRIM? PELLICUL? S?CABLE [Concomitant]
     Active Substance: BISOPROLOL
     Dosage: 2.5 MG
     Route: 048
  7. CALCIDOSE VITAMINE D, POUDRE ORALE EN SACHET-DOSE [Concomitant]
     Active Substance: CALCIUM\CHOLECALCIFEROL
     Dosage: 1 DOSAGE FORMS
     Route: 048
  8. PERINDOPRIL ARGININE [Concomitant]
     Active Substance: PERINDOPRIL ARGININE
     Dosage: 2 MG
     Route: 048
  9. LASILIX SPECIAL 500 MG, COMPRIM? S?CABLE [Concomitant]
     Active Substance: FUROSEMIDE
     Dosage: 1250 MG
     Route: 048
     Dates: start: 201912
  10. ABASAGLAR 100 UNIT?S/ML, SOLUTION INJECTABLE EN STYLO PR?REMPLI [Concomitant]
     Active Substance: INSULIN GLARGINE
     Dosage: 8 IU
     Route: 058
  11. PREVISCAN 20 MG, COMPRIM? S?CABLE [Concomitant]
     Active Substance: FLUINDIONE
     Dosage: 5 MG
     Route: 048

REACTIONS (1)
  - Pancreatitis acute [Recovering/Resolving]

NARRATIVE: CASE EVENT DATE: 20200114
